FAERS Safety Report 4530080-4 (Version None)
Quarter: 2004Q4

REPORT INFORMATION
  Report Type: 
  Country: None (occurrence: None)
  Receive Date: 20041215
  Receipt Date: 20041215
  Transmission Date: 20050328
  Serious: Yes (Life-Threatening, Hospitalization, Disabling, Other)
  Sender: FDA-Public Use
  Company Number: None

PATIENT
  Age: 64 Year
  Sex: Male
  Weight: 72.5755 kg

DRUGS (3)
  1. REMICADE [Suspect]
     Indication: RHEUMATOID ARTHRITIS
     Dosage: MONTHLY INTRAVENOUS
     Route: 042
     Dates: start: 20030101, end: 20031101
  2. GLUCOPHAGE [Concomitant]
  3. GLYBURIDE [Concomitant]

REACTIONS (4)
  - NOSOCOMIAL INFECTION [None]
  - PERINEPHRIC ABSCESS [None]
  - PULMONARY CAVITATION [None]
  - PYOTHORAX [None]
